FAERS Safety Report 7246556-5 (Version None)
Quarter: 2011Q1

REPORT INFORMATION
  Report Type: 
  Country: None (occurrence: None)
  Receive Date: 20110127
  Receipt Date: 20110119
  Transmission Date: 20110831
  Serious: Yes (Hospitalization)
  Sender: FDA-Public Use
  Company Number: US-BIOGENIDEC-2010BI039734

PATIENT
  Sex: Female
  Weight: 81 kg

DRUGS (6)
  1. TOPROL-XL [Concomitant]
     Indication: HYPERTENSION
     Dates: start: 20090101
  2. AVONEX [Suspect]
     Indication: MULTIPLE SCLEROSIS
     Route: 030
     Dates: start: 20100929
  3. OMEPRAZOLE [Concomitant]
     Indication: GASTROOESOPHAGEAL REFLUX DISEASE
  4. DICLOFENAC [Concomitant]
     Indication: ARTHRITIS
  5. LISINOPRIL [Concomitant]
     Indication: HYPERTENSION
     Dates: start: 20050101
  6. LOVASTATIN [Concomitant]
     Indication: BLOOD CHOLESTEROL INCREASED
     Dates: start: 20050101

REACTIONS (2)
  - GOITRE [None]
  - THYROID CYST [None]
